FAERS Safety Report 26185568 (Version 1)
Quarter: 2025Q4

REPORT INFORMATION
  Report Type: Report from Study
  Country: US (occurrence: US)
  Receive Date: 20251222
  Receipt Date: 20251222
  Transmission Date: 20260118
  Serious: Yes (Hospitalization, Other)
  Sender: ROCHE
  Company Number: US-ROCHE-3290092

PATIENT
  Age: 58 Year
  Sex: Female
  Weight: 81.19 kg

DRUGS (50)
  1. XOLAIR [Suspect]
     Active Substance: OMALIZUMAB
     Indication: Asthma
     Dosage: EVERY 28 DAYS
     Route: 058
  2. XOLAIR [Suspect]
     Active Substance: OMALIZUMAB
     Dosage: LAST INJECTION DATE: 07-AUG-2024
     Route: 058
     Dates: end: 20240615
  3. XOLAIR [Suspect]
     Active Substance: OMALIZUMAB
     Route: 058
  4. NICOTINE [Concomitant]
     Active Substance: NICOTINE
     Dosage: 21MG/24HR
     Route: 062
  5. HYDROCORTISONE [Concomitant]
     Active Substance: HYDROCORTISONE
     Route: 048
  6. POTASSIUM CHLORIDE [Concomitant]
     Active Substance: POTASSIUM CHLORIDE
     Route: 048
  7. REGLAN [Concomitant]
     Active Substance: METOCLOPRAMIDE HYDROCHLORIDE
     Route: 048
  8. BUPROPION [Concomitant]
     Active Substance: BUPROPION
     Route: 048
  9. AMBIEN [Concomitant]
     Active Substance: ZOLPIDEM TARTRATE
     Route: 048
  10. GABAPENTIN [Concomitant]
     Active Substance: GABAPENTIN
     Route: 048
  11. GABAPENTIN [Concomitant]
     Active Substance: GABAPENTIN
     Route: 048
  12. SYNTHROID [Concomitant]
     Active Substance: LEVOTHYROXINE SODIUM
     Dosage: 75MCG
     Route: 048
  13. SIMVASTATIN [Concomitant]
     Active Substance: SIMVASTATIN
     Route: 048
  14. ROBAXIN [Concomitant]
     Active Substance: METHOCARBAMOL
     Route: 048
  15. LASIX [Concomitant]
     Active Substance: FUROSEMIDE
     Route: 048
  16. AMLODIPINE [Concomitant]
     Active Substance: AMLODIPINE BESYLATE
     Route: 048
  17. ESCITALOPRAM [Concomitant]
     Active Substance: ESCITALOPRAM OXALATE
     Route: 048
  18. METOPROLOL TARTRATE [Concomitant]
     Active Substance: METOPROLOL TARTRATE
     Route: 048
  19. ALPRAZOLAM [Concomitant]
     Active Substance: ALPRAZOLAM
     Route: 048
  20. CLARITIN [Concomitant]
     Active Substance: LORATADINE
     Route: 048
  21. ALBUTEROL\IPRATROPIUM [Concomitant]
     Active Substance: ALBUTEROL\IPRATROPIUM
     Dosage: 2.5MG-0.5MG
  22. BREZTRI [Concomitant]
     Active Substance: BUDESONIDE\FORMOTEROL\GLYCOPYRROLATE
  23. BUDESONIDE [Concomitant]
     Active Substance: BUDESONIDE
     Dosage: 0.5MG/2ML SUSPENSION 2ML BY NEBULIZER TWICE A DAY.
  24. PROAIR HFA [Concomitant]
     Active Substance: ALBUTEROL SULFATE
  25. ALBUTEROL SU POW [Concomitant]
  26. ALPRAZOLAM [Concomitant]
     Active Substance: ALPRAZOLAM
  27. BREZTRI AEROSPHERE AER 160-9-4 [Concomitant]
  28. CALCIUM CARBONATE WITH VITAMIN D (CHOLECALCIFEROL) [Concomitant]
     Active Substance: CALCIUM CARBONATE\CHOLECALCIFEROL
     Dosage: 3 MG
  29. DICYCLOMINE [DICYCLOVERINE] POW [Concomitant]
  30. FLUDROCORTISON POW [Concomitant]
  31. FLUTICASONE [Concomitant]
     Active Substance: FLUTICASONE
  32. LOSARTAN POTASSIUM [Concomitant]
     Active Substance: LOSARTAN POTASSIUM
  33. METOCLOPRAMIDE [Concomitant]
     Active Substance: METOCLOPRAMIDE
  34. MIRTAZAPINE [Concomitant]
     Active Substance: MIRTAZAPINE
  35. OMEPRAZOLE [Concomitant]
     Active Substance: OMEPRAZOLE
  36. BUDESONIDE [Concomitant]
     Active Substance: BUDESONIDE
  37. CEPHALEXIN MONOHYDRATE [Concomitant]
     Active Substance: CEPHALEXIN MONOHYDRATE
  38. DOCUSATE SODIUM [Concomitant]
     Active Substance: DOCUSATE SODIUM
  39. ESCITALOPRAM [Concomitant]
     Active Substance: ESCITALOPRAM OXALATE
  40. FENOFIBRATE [Concomitant]
     Active Substance: FENOFIBRATE
  41. FUROSEMIDE [Concomitant]
     Active Substance: FUROSEMIDE
  42. LEVOTHYROXINE [Concomitant]
     Active Substance: LEVOTHYROXINE
  43. METRONIDAZOLE [Concomitant]
     Active Substance: METRONIDAZOLE
  44. MONTELUKAST [Concomitant]
     Active Substance: MONTELUKAST
  45. NYSTATIN [Concomitant]
     Active Substance: NYSTATIN
  46. ONDANSETRON [Concomitant]
     Active Substance: ONDANSETRON
  47. OXYCODONE [Concomitant]
     Active Substance: OXYCODONE
  48. PROPRANOLOL [Concomitant]
     Active Substance: PROPRANOLOL HYDROCHLORIDE
  49. TRAMADOL HCL [Concomitant]
     Active Substance: TRAMADOL HYDROCHLORIDE
  50. ZOLPIDEM TARTRATE [Concomitant]
     Active Substance: ZOLPIDEM TARTRATE

REACTIONS (15)
  - Off label use [Unknown]
  - Lower respiratory tract congestion [Unknown]
  - Productive cough [Unknown]
  - Sinus congestion [Unknown]
  - Rhinorrhoea [Unknown]
  - Upper-airway cough syndrome [Unknown]
  - Obesity [Unknown]
  - Back pain [Unknown]
  - Insomnia [Unknown]
  - Restrictive pulmonary disease [Unknown]
  - Hypothyroidism [Unknown]
  - Upper respiratory tract infection [Not Recovered/Not Resolved]
  - Chronic obstructive pulmonary disease [Not Recovered/Not Resolved]
  - Asthma [Not Recovered/Not Resolved]
  - Depression [Not Recovered/Not Resolved]
